FAERS Safety Report 8985595 (Version 4)
Quarter: 2013Q1

REPORT INFORMATION
  Report Type: Spontaneous
  Country: JP (occurrence: JP)
  Receive Date: 20121226
  Receipt Date: 20130117
  Transmission Date: 20140127
  Serious: Yes (Other)
  Sender: FDA-Public Use
  Company Number: JP-PFIZER INC-2012320815

PATIENT
  Age: 62 Year
  Sex: Female

DRUGS (3)
  1. NORVASC OD [Suspect]
     Indication: HYPERTENSION
     Dosage: 5 MG, 1X/DAY
     Route: 048
     Dates: start: 20090512, end: 20121127
  2. RABEPRAZOLE SODIUM [Suspect]
     Dosage: UNK
     Route: 048
     Dates: end: 20121127
  3. DIOVAN (VALSARTAN) [Suspect]
     Indication: HYPERTENSION
     Dosage: UNK
     Route: 048
     Dates: end: 20121127

REACTIONS (5)
  - Blood creatine phosphokinase increased [Recovered/Resolved]
  - Back pain [Recovered/Resolved]
  - Musculoskeletal stiffness [Recovered/Resolved]
  - Aspartate aminotransferase increased [Unknown]
  - Blood lactate dehydrogenase increased [Recovering/Resolving]
